FAERS Safety Report 17646536 (Version 2)
Quarter: 2020Q2

REPORT INFORMATION
  Report Type: Spontaneous
  Country: US (occurrence: US)
  Receive Date: 20200408
  Receipt Date: 20200504
  Transmission Date: 20200713
  Serious: Yes (Hospitalization, Other)
  Sender: FDA-Public Use
  Company Number: US-PFIZER INC-2020142957

PATIENT
  Age: 69 Year
  Sex: Male

DRUGS (3)
  1. TAMSULOSIN [Concomitant]
     Active Substance: TAMSULOSIN
     Indication: BENIGN PROSTATIC HYPERPLASIA
     Dosage: UNK
  2. ACETYLSALICYLIC ACID [Concomitant]
     Active Substance: ASPIRIN
     Indication: CORONARY ARTERY DISEASE
     Dosage: 81 MG
  3. SILDENAFIL CITRATE. [Suspect]
     Active Substance: SILDENAFIL CITRATE
     Indication: ERECTILE DYSFUNCTION
     Dosage: 25 MG, UNK

REACTIONS (7)
  - Hypertension [Recovering/Resolving]
  - Haemorrhage intracranial [Recovering/Resolving]
  - Cerebral small vessel ischaemic disease [Recovering/Resolving]
  - Partial seizures [Unknown]
  - Papilloedema [Recovering/Resolving]
  - Executive dysfunction [Not Recovered/Not Resolved]
  - Cerebral amyloid angiopathy [Recovering/Resolving]
